FAERS Safety Report 4500125-6 (Version None)
Quarter: 2004Q4

REPORT INFORMATION
  Report Type: 
  Country: None (occurrence: None)
  Receive Date: 20041112
  Receipt Date: 20041015
  Transmission Date: 20050328
  Serious: Yes (Other)
  Sender: FDA-Public Use
  Company Number: PHFR2004GB03888

PATIENT
  Age: 71 Year
  Sex: Male

DRUGS (8)
  1. GLEEVEC [Suspect]
     Indication: CHRONIC MYELOID LEUKAEMIA
     Dosage: 400MG/DAY
     Route: 065
  2. INSULATARD NPH HUMAN [Concomitant]
     Dates: start: 20001101
  3. BISOPROLOL FUMARATE [Concomitant]
     Dosage: 10 MG, QD
     Route: 048
  4. METFORMIN [Concomitant]
     Dosage: 1 G, BID
     Route: 048
  5. ASPIRIN [Concomitant]
     Dosage: 75MG/DAY
     Route: 048
  6. PERINDOPRIL [Concomitant]
  7. SIMVASTATIN [Concomitant]
     Dosage: 20MG/DAY
     Route: 048
  8. FRUSEMIDE [Concomitant]
     Dosage: 40MG/DAY
     Route: 048

REACTIONS (3)
  - SWELLING FACE [None]
  - SWOLLEN TONGUE [None]
  - THERAPY NON-RESPONDER [None]
